FAERS Safety Report 6970064-X (Version None)
Quarter: 2010Q3

REPORT INFORMATION
  Report Type: 
  Country: None (occurrence: None)
  Receive Date: 20100908
  Receipt Date: 20100826
  Transmission Date: 20110219
  Serious: Yes (Other)
  Sender: FDA-Public Use
  Company Number: CA-ELI_LILLY_AND_COMPANY-CA201007004176

PATIENT
  Age: 41 Year
  Sex: Male

DRUGS (3)
  1. OLANZAPINE [Suspect]
     Indication: SCHIZOPHRENIA
     Dosage: 20 MG, EACH EVENING
     Route: 048
  2. OLANZAPINE [Suspect]
     Dosage: 15 MG, EACH EVENING
  3. OLANZAPINE [Suspect]
     Dosage: 5 MG, UNK

REACTIONS (3)
  - HALLUCINATION, AUDITORY [None]
  - HOMICIDE [None]
  - OBESITY [None]
